FAERS Safety Report 5413715-3 (Version None)
Quarter: 2007Q3

REPORT INFORMATION
  Report Type: 
  Country: None (occurrence: None)
  Receive Date: 20070814
  Receipt Date: 20070803
  Transmission Date: 20080115
  Serious: Yes (Other)
  Sender: FDA-Public Use
  Company Number: B0482995A

PATIENT
  Age: 37 Year
  Sex: Male

DRUGS (1)
  1. AUGMENTIN '125' [Suspect]
     Indication: PROPHYLAXIS
     Dosage: 625MG THREE TIMES PER DAY
     Route: 048
     Dates: start: 20070716, end: 20070720

REACTIONS (2)
  - DIARRHOEA HAEMORRHAGIC [None]
  - VOMITING [None]
